FAERS Safety Report 5794989-6 (Version None)
Quarter: 2008Q2

REPORT INFORMATION
  Report Type: 
  Country: None (occurrence: None)
  Receive Date: 20080630
  Receipt Date: 20080306
  Transmission Date: 20081010
  Serious: No
  Sender: FDA-Public Use
  Company Number: US-BRISTOL-MYERS SQUIBB COMPANY-14010508

PATIENT
  Age: 64 Year
  Sex: Male
  Weight: 109 kg

DRUGS (2)
  1. ORENCIA [Suspect]
     Indication: RHEUMATOID ARTHRITIS
     Dosage: 1 DOSAGE FORM=1 VIAL
     Route: 042
     Dates: start: 20071211
  2. LIDOCAINE [Suspect]
     Dosage: 1% SOLUTION
     Dates: start: 20071211

REACTIONS (1)
  - MEDICATION ERROR [None]
